FAERS Safety Report 14989943 (Version 1)
Quarter: 2018Q2

REPORT INFORMATION
  Report Type: Spontaneous
  Country: US (occurrence: US)
  Receive Date: 20180608
  Receipt Date: 20180608
  Transmission Date: 20180711
  Serious: No
  Sender: FDA-Public Use
  Company Number: US-ROCHE-1984483

PATIENT
  Sex: Male
  Weight: 93.07 kg

DRUGS (1)
  1. ACTEMRA [Suspect]
     Active Substance: TOCILIZUMAB
     Indication: ARTHRITIS
     Dosage: PRESCRIBED EVERY 2 WEEKS
     Route: 058
     Dates: start: 2016

REACTIONS (4)
  - Dyspnoea [Unknown]
  - Skin irritation [Not Recovered/Not Resolved]
  - Herpes zoster [Recovered/Resolved]
  - Weight increased [Unknown]

NARRATIVE: CASE EVENT DATE: 2016
